FAERS Safety Report 25360283 (Version 1)
Quarter: 2025Q2

REPORT INFORMATION
  Report Type: Spontaneous
  Country: US (occurrence: US)
  Receive Date: 20250527
  Receipt Date: 20250527
  Transmission Date: 20250716
  Serious: Yes (Other)
  Sender: ACCORD
  Company Number: US-Accord-471504

PATIENT
  Sex: Female

DRUGS (17)
  1. METHOTREXATE [Suspect]
     Active Substance: METHOTREXATE
     Indication: Product used for unknown indication
     Dates: start: 201808, end: 201809
  2. DITROPAN XL [Concomitant]
     Active Substance: OXYBUTYNIN CHLORIDE
  3. FOSAMAX [Concomitant]
     Active Substance: ALENDRONATE SODIUM
  4. DOXYCYCLINE [Concomitant]
     Active Substance: DOXYCYCLINE
  5. CHOLECALCIFEROL [Concomitant]
     Active Substance: CHOLECALCIFEROL
  6. FUROSEMIDE [Concomitant]
     Active Substance: FUROSEMIDE
  7. METOPROLOL TARTRATE [Concomitant]
     Active Substance: METOPROLOL TARTRATE
  8. LOPRESSOR [Concomitant]
     Active Substance: METOPROLOL TARTRATE
  9. PRILOSEC [Concomitant]
     Active Substance: OMEPRAZOLE MAGNESIUM
  10. GLUCOPHAGE XR [Concomitant]
     Active Substance: METFORMIN HYDROCHLORIDE
  11. PRADAXA [Concomitant]
     Active Substance: DABIGATRAN ETEXILATE MESYLATE
  12. TIKOSYN [Concomitant]
     Active Substance: DOFETILIDE
  13. ASPIRIN [Concomitant]
     Active Substance: ASPIRIN
  14. LIPITOR [Concomitant]
     Active Substance: ATORVASTATIN CALCIUM
  15. SENNA [Concomitant]
     Active Substance: SENNOSIDES
  16. MAGNESIUM OXIDE [Concomitant]
     Active Substance: MAGNESIUM OXIDE
  17. PREDNISONE [Concomitant]
     Active Substance: PREDNISONE

REACTIONS (1)
  - Encephalopathy [Unknown]
